FAERS Safety Report 8254721-3 (Version None)
Quarter: 2012Q1

REPORT INFORMATION
  Report Type: 
  Country: None (occurrence: None)
  Receive Date: 20120322
  Receipt Date: 20111213
  Transmission Date: 20120608
  Serious: Yes (Hospitalization)
  Sender: FDA-Public Use
  Company Number: UTC-013492

PATIENT
  Age: 80 Year
  Sex: Female
  Weight: 80.9 kg

DRUGS (4)
  1. LETAIRIS [Concomitant]
  2. DIURETICS (DIURETICS) [Concomitant]
  3. TYVASO [Suspect]
     Indication: COR PULMONALE CHRONIC
     Dosage: 18 TO 54 MICROGRAMS (4 IN 1 D), INHALATION
     Route: 055
     Dates: start: 20110630
  4. COUMADIN [Concomitant]

REACTIONS (2)
  - SYNCOPE [None]
  - BLOOD GLUCOSE DECREASED [None]
